FAERS Safety Report 6192100-3 (Version None)
Quarter: 2009Q2

REPORT INFORMATION
  Report Type: 
  Country: None (occurrence: None)
  Receive Date: 20090515
  Receipt Date: 20090507
  Transmission Date: 20091009
  Serious: Yes (Hospitalization)
  Sender: FDA-Public Use
  Company Number: IT-PFIZER INC-2009209219

PATIENT
  Age: 70 Year

DRUGS (4)
  1. CELEBREX [Suspect]
     Indication: ARTHRALGIA
     Dosage: 200 MG, 1X/DAY
     Route: 048
     Dates: start: 20090220
  2. ASPIRIN [Concomitant]
  3. EUTIROX [Concomitant]
  4. SIMVASTATIN [Concomitant]

REACTIONS (1)
  - DIPLOPIA [None]
